FAERS Safety Report 8975822 (Version 1)
Quarter: 2012Q4

REPORT INFORMATION
  Report Type: 
  Country: US (occurrence: US)
  Receive Date: 20121219
  Receipt Date: 20121219
  Transmission Date: 20130627
  Serious: Yes (Other)
  Sender: FDA-Public Use
  Company Number: CHPA2012US024990

PATIENT
  Age: 60 Year
  Sex: Female

DRUGS (3)
  1. EXCEDRIN ES BACK + BODY [Suspect]
     Indication: FIBROMYALGIA
     Dosage: UNK
     Route: 048
     Dates: start: 2008
  2. EXCEDRIN TENSION HEADACHE [Suspect]
     Indication: FIBROMYALGIA
     Dosage: Unk, Unk
     Route: 048
     Dates: start: 2008
  3. STEROIDS NOS [Suspect]
     Dosage: Unk, Unk

REACTIONS (3)
  - Asthma [Unknown]
  - Therapeutic response unexpected [Unknown]
  - Off label use [Unknown]
